FAERS Safety Report 5525078-3 (Version None)
Quarter: 2007Q4

REPORT INFORMATION
  Report Type: 
  Country: None (occurrence: None)
  Receive Date: 20071119
  Receipt Date: 20071108
  Transmission Date: 20080405
  Serious: Yes (Other)
  Sender: FDA-Public Use
  Company Number: 2007-03764

PATIENT
  Age: 57 Year
  Sex: Male
  Weight: 52 kg

DRUGS (7)
  1. VELCADE [Suspect]
     Indication: MULTIPLE MYELOMA
     Dosage: 2.00 MG, INTRAVENOUS, 1.00 MG, INTRAVENOUS
     Route: 042
     Dates: start: 20071009, end: 20071019
  2. ACYCLOVIR [Concomitant]
  3. ALLOPURINOL [Concomitant]
  4. PETROLATUM OINTMENT, CREAM [Concomitant]
  5. VIDARABINE (VIDARABINE) [Concomitant]
  6. ALPROSTADIL [Concomitant]
  7. ZOMETA [Concomitant]

REACTIONS (7)
  - ABDOMINAL PAIN LOWER [None]
  - BONE MARROW FAILURE [None]
  - DIARRHOEA [None]
  - EPISTAXIS [None]
  - GASTRITIS EROSIVE [None]
  - GASTRITIS HAEMORRHAGIC [None]
  - HAEMATOTOXICITY [None]
